FAERS Safety Report 25527543 (Version 1)
Quarter: 2025Q3

REPORT INFORMATION
  Report Type: Spontaneous
  Country: JP (occurrence: JP)
  Receive Date: 20250708
  Receipt Date: 20250708
  Transmission Date: 20251020
  Serious: Yes (Other)
  Sender: STRIDES
  Company Number: JP-STRIDES ARCOLAB LIMITED-2025SP008242

PATIENT
  Age: 20 Month
  Sex: Female

DRUGS (4)
  1. PREDNISOLONE [Suspect]
     Active Substance: PREDNISOLONE
     Indication: B-lymphocyte count increased
     Route: 065
  2. PREDNISOLONE [Suspect]
     Active Substance: PREDNISOLONE
     Indication: Gene mutation
  3. PREDNISOLONE [Suspect]
     Active Substance: PREDNISOLONE
     Indication: Decreased immune responsiveness
  4. PREDNISOLONE [Suspect]
     Active Substance: PREDNISOLONE
     Indication: Upper respiratory tract infection

REACTIONS (2)
  - Disease progression [Unknown]
  - Off label use [Unknown]
